FAERS Safety Report 6810857-2 (Version None)
Quarter: 2010Q2

REPORT INFORMATION
  Report Type: 
  Country: None (occurrence: None)
  Receive Date: 20100630
  Receipt Date: 20080522
  Transmission Date: 20101027
  Serious: No
  Sender: FDA-Public Use
  Company Number: US-PFIZER INC-2008026319

PATIENT
  Sex: Female
  Weight: 65.909 kg

DRUGS (5)
  1. ESTRING [Suspect]
     Indication: VULVOVAGINAL DRYNESS
     Dates: start: 20030101
  2. ESTRING [Suspect]
     Indication: POLLAKIURIA
  3. ESTRING [Suspect]
     Indication: ATROPHIC VULVOVAGINITIS
  4. ZOLOFT [Concomitant]
  5. ALL OTHER THERAPEUTIC PRODUCTS [Concomitant]

REACTIONS (1)
  - DRUG INEFFECTIVE [None]
